FAERS Safety Report 11412230 (Version 1)
Quarter: 2015Q3

REPORT INFORMATION
  Report Type: Spontaneous
  Country: US (occurrence: US)
  Receive Date: 20150821
  Receipt Date: 20150821
  Transmission Date: 20151125
  Serious: No
  Sender: FDA-Public Use
  Company Number: US-ELI_LILLY_AND_COMPANY-US201203007889

PATIENT
  Age: 57 Year
  Sex: Female

DRUGS (2)
  1. HUMULIN N [Suspect]
     Active Substance: INSULIN HUMAN
     Indication: DIABETES MELLITUS
     Dosage: UNK
     Dates: start: 20120101, end: 20120228
  2. HUMULIN R [Suspect]
     Active Substance: INSULIN HUMAN
     Dosage: UNK

REACTIONS (6)
  - Dry skin [Recovering/Resolving]
  - Toxicity to various agents [Unknown]
  - Eye pain [Unknown]
  - Skin disorder [Unknown]
  - Skin burning sensation [Unknown]
  - Paraesthesia [Unknown]

NARRATIVE: CASE EVENT DATE: 201201
